FAERS Safety Report 5766134-4 (Version None)
Quarter: 2008Q2

REPORT INFORMATION
  Report Type: 
  Country: None (occurrence: None)
  Receive Date: 20080611
  Receipt Date: 20080606
  Transmission Date: 20081010
  Serious: Yes (Hospitalization)
  Sender: FDA-Public Use
  Company Number: US-ASTRAZENECA-2008UW11471

PATIENT
  Age: 77 Year
  Sex: Female

DRUGS (12)
  1. SYMBICORT [Suspect]
     Indication: ASTHMA
     Route: 055
     Dates: start: 20080210
  2. SYMBICORT [Suspect]
     Route: 055
  3. VITAMINS [Concomitant]
  4. CALCIUM [Concomitant]
  5. ASPIRIN [Concomitant]
  6. GLYBURIDE [Concomitant]
  7. DIGOXIN [Concomitant]
  8. WALZYR [Concomitant]
  9. PROAIR HFA [Concomitant]
  10. PREDNISONE TAB [Concomitant]
  11. HYDRALAZINE HCL [Concomitant]
  12. FEXOFENADINE [Concomitant]

REACTIONS (3)
  - BLOOD PRESSURE INCREASED [None]
  - FALL [None]
  - SKIN LACERATION [None]
